FAERS Safety Report 8506724-9 (Version None)
Quarter: 2012Q3

REPORT INFORMATION
  Report Type: 
  Country: None (occurrence: None)
  Receive Date: 20120712
  Receipt Date: 20120706
  Transmission Date: 20120928
  Serious: Yes (Death)
  Sender: FDA-Public Use
  Company Number: NO-ROXANE LABORATORIES, INC.-2012-RO-01522RO

PATIENT
  Age: 31 Year
  Sex: Female

DRUGS (4)
  1. DIAZEPAM [Suspect]
  2. OXAZEPAM [Suspect]
  3. ETHANOL [Suspect]
  4. ACETAMINOPHEN W/ CODEINE [Suspect]

REACTIONS (1)
  - TOXICITY TO VARIOUS AGENTS [None]
